FAERS Safety Report 6373926-X (Version None)
Quarter: 2009Q3

REPORT INFORMATION
  Report Type: 
  Country: None (occurrence: None)
  Receive Date: 20090924
  Receipt Date: 20090518
  Transmission Date: 20100115
  Serious: No
  Sender: FDA-Public Use
  Company Number: US-ASTRAZENECA-2009UW12811

PATIENT
  Age: 49 Year
  Sex: Male

DRUGS (5)
  1. SEROQUEL [Suspect]
     Route: 048
  2. SEROQUEL [Suspect]
     Route: 048
     Dates: end: 20090501
  3. ATENOLOL [Concomitant]
     Indication: HYPERTENSION
  4. EXCEDRIN [Concomitant]
     Indication: NECK PAIN
  5. DIAZEPAM [Concomitant]

REACTIONS (6)
  - ANXIETY [None]
  - ECONOMIC PROBLEM [None]
  - FAMILY STRESS [None]
  - PANIC ATTACK [None]
  - PARANOIA [None]
  - SWOLLEN TONGUE [None]
